FAERS Safety Report 4470837-1 (Version None)
Quarter: 2004Q4

REPORT INFORMATION
  Report Type: 
  Country: None (occurrence: None)
  Receive Date: 20041011
  Receipt Date: 20040723
  Transmission Date: 20050328
  Serious: Yes (Hospitalization)
  Sender: FDA-Public Use
  Company Number: US-BRISTOL-MYERS SQUIBB COMPANY-12649778

PATIENT
  Age: 94 Year
  Sex: Male

DRUGS (5)
  1. ABILIFY [Suspect]
     Indication: PSYCHOTIC DISORDER
     Dosage: INITIATED AT 5 MG/DAY.
     Route: 048
  2. ATIVAN [Concomitant]
  3. NITRO-DUR [Concomitant]
  4. BEROCCA PLUS [Concomitant]
  5. TYLENOL [Concomitant]

REACTIONS (2)
  - HYPOTHERMIA [None]
  - UROSEPSIS [None]
